FAERS Safety Report 6502771-7 (Version None)
Quarter: 2009Q4

REPORT INFORMATION
  Report Type: 
  Country: None (occurrence: None)
  Receive Date: 20091217
  Receipt Date: 20091210
  Transmission Date: 20100525
  Serious: Yes (Other)
  Sender: FDA-Public Use
  Company Number: DE-ABBOTT-09P-062-0501561-00

PATIENT
  Sex: Female

DRUGS (8)
  1. HUMIRA [Suspect]
     Indication: RHEUMATOID ARTHRITIS
     Dates: start: 20040601, end: 20060301
  2. HUMIRA [Suspect]
     Dates: start: 20060401, end: 20061101
  3. HUMIRA [Suspect]
     Dates: start: 20061201, end: 20070301
  4. HUMIRA [Suspect]
     Dates: start: 20070801
  5. METHOTREXATE [Concomitant]
     Indication: RHEUMATOID ARTHRITIS
     Dates: end: 20070301
  6. COXIBS [Concomitant]
     Indication: DRUG USE FOR UNKNOWN INDICATION
  7. ANALGESIC [Concomitant]
     Indication: DRUG USE FOR UNKNOWN INDICATION
  8. GLUCOCORTICOIDS [Concomitant]
     Indication: RHEUMATOID ARTHRITIS

REACTIONS (3)
  - HYPERTHERMIA [None]
  - IMPAIRED HEALING [None]
  - SKIN REACTION [None]
